FAERS Safety Report 6378069-7 (Version None)
Quarter: 2009Q3

REPORT INFORMATION
  Report Type: 
  Country: None (occurrence: None)
  Receive Date: 20090925
  Receipt Date: 20090917
  Transmission Date: 20100115
  Serious: Yes (Hospitalization)
  Sender: FDA-Public Use
  Company Number: JP-ABBOTT-09P-087-0598788-00

PATIENT
  Sex: Female

DRUGS (5)
  1. HUMIRA [Suspect]
     Indication: RHEUMATOID ARTHRITIS
     Route: 058
     Dates: start: 20080922
  2. METHOTREXATE [Concomitant]
     Indication: RHEUMATOID ARTHRITIS
  3. PREDNISOLONE [Concomitant]
     Indication: RHEUMATOID ARTHRITIS
  4. CALCIUM FOLINATE [Concomitant]
     Indication: PROPHYLAXIS
  5. RISEDRONATE SODIUM [Concomitant]
     Indication: OSTEOPOROSIS

REACTIONS (4)
  - ANURIA [None]
  - PYREXIA [None]
  - RENAL CYST [None]
  - RENAL FAILURE CHRONIC [None]
